FAERS Safety Report 9669869 (Version 2)
Quarter: 2014Q1

REPORT INFORMATION
  Report Type: Spontaneous
  Country: US (occurrence: US)
  Receive Date: 20131105
  Receipt Date: 20140108
  Transmission Date: 20141002
  Serious: Yes (Death)
  Sender: FDA-Public Use
  Company Number: US-TEVA-441843USA

PATIENT
  Sex: Female

DRUGS (1)
  1. FENTORA [Suspect]

REACTIONS (2)
  - Metastases to peritoneum [Fatal]
  - Adverse event [Unknown]
